FAERS Safety Report 14930244 (Version 3)
Quarter: 2018Q2

REPORT INFORMATION
  Report Type: Report from Study
  Country: None (occurrence: DK)
  Receive Date: 20180523
  Receipt Date: 20180627
  Transmission Date: 20180711
  Serious: Yes (Other)
  Sender: FDA-Public Use
  Company Number: DK-BAUSCH-BL-2018-014827

PATIENT
  Age: 73 Year
  Sex: Male

DRUGS (7)
  1. DEXAMETHASONE. [Suspect]
     Active Substance: DEXAMETHASONE
     Route: 048
     Dates: start: 20180305, end: 20180314
  2. REVLIMID [Suspect]
     Active Substance: LENALIDOMIDE
     Indication: PLASMA CELL MYELOMA
     Dosage: 80 MILLIGRAM
     Route: 048
     Dates: start: 20180305, end: 20180314
  3. ZARZIO [Concomitant]
     Active Substance: FILGRASTIM
     Indication: CHRONIC LYMPHOCYTIC LEUKAEMIA
  4. VELCADE [Suspect]
     Active Substance: BORTEZOMIB
     Indication: PLASMA CELL MYELOMA
     Dosage: 15.6 MILLIGRAM/SQ. METER
     Route: 058
     Dates: start: 20180305, end: 20180314
  5. DEXAMETHASONE. [Suspect]
     Active Substance: DEXAMETHASONE
     Indication: PLASMA CELL MYELOMA
     Route: 048
     Dates: start: 20180326, end: 20180407
  6. REVLIMID [Suspect]
     Active Substance: LENALIDOMIDE
     Dosage: 100 MILLIGRAM
     Route: 048
     Dates: start: 20180326, end: 20180407
  7. VELCADE [Suspect]
     Active Substance: BORTEZOMIB
     Dosage: 2.8571 MILLIGRAM
     Route: 058
     Dates: start: 20180326, end: 20180407

REACTIONS (1)
  - Pneumocystis jirovecii infection [Recovered/Resolved]

NARRATIVE: CASE EVENT DATE: 20180423
